FAERS Safety Report 6103929-1 (Version None)
Quarter: 2009Q1

REPORT INFORMATION
  Report Type: 
  Country: None (occurrence: None)
  Receive Date: 20090305
  Receipt Date: 20090303
  Transmission Date: 20090719
  Serious: Yes (Hospitalization, Disabling, Other)
  Sender: FDA-Public Use
  Company Number: A0771150A

PATIENT
  Age: 66 Year
  Sex: Female

DRUGS (2)
  1. REQUIP [Suspect]
     Indication: PARKINSON'S DISEASE
     Dosage: .5MG THREE TIMES PER DAY
     Route: 048
     Dates: start: 20090218, end: 20090225
  2. MIRAPEX [Concomitant]

REACTIONS (1)
  - PARKINSONIAN CRISIS [None]
